FAERS Safety Report 11951511 (Version 1)
Quarter: 2016Q1

REPORT INFORMATION
  Report Type: Spontaneous
  Country: US (occurrence: US)
  Receive Date: 20160126
  Receipt Date: 20160126
  Transmission Date: 20160526
  Serious: No
  Sender: FDA-Public Use
  Company Number: US-BIOGEN-2016BI00178424

PATIENT
  Sex: Male

DRUGS (1)
  1. TECFIDERA [Suspect]
     Active Substance: DIMETHYL FUMARATE
     Indication: MULTIPLE SCLEROSIS

REACTIONS (10)
  - Pruritus [Unknown]
  - Amnesia [Unknown]
  - Musculoskeletal discomfort [Unknown]
  - Flushing [Unknown]
  - Head discomfort [Unknown]
  - Muscular weakness [Unknown]
  - Headache [Unknown]
  - Hypoaesthesia [Unknown]
  - Hypertension [Unknown]
  - Dizziness [Unknown]
